FAERS Safety Report 23709322 (Version 1)
Quarter: 2024Q2

REPORT INFORMATION
  Report Type: Spontaneous
  Country: US (occurrence: US)
  Receive Date: 20240404
  Receipt Date: 20240404
  Transmission Date: 20240716
  Serious: No
  Sender: FDA-Public Use
  Company Number: US-PURDUE PHARMA-USA-2024-0308729

PATIENT

DRUGS (1)
  1. OXYCODONE HYDROCHLORIDE [Suspect]
     Active Substance: OXYCODONE HYDROCHLORIDE
     Indication: Pain
     Dosage: UNK
     Route: 048

REACTIONS (7)
  - Gastrointestinal disorder [Unknown]
  - Rash vesicular [Unknown]
  - Adverse drug reaction [Unknown]
  - Product quality issue [Unknown]
  - Product size issue [Unknown]
  - Product colour issue [Unknown]
  - Rash [Unknown]
